FAERS Safety Report 19607474 (Version 1)
Quarter: 2021Q3

REPORT INFORMATION
  Report Type: Spontaneous
  Country: GB (occurrence: GB)
  Receive Date: 20210726
  Receipt Date: 20210726
  Transmission Date: 20211014
  Serious: Yes (Hospitalization)
  Sender: FDA-Public Use
  Company Number: GB-TEVA-2021-GB-1935792

PATIENT
  Age: 76 Year
  Sex: Male

DRUGS (4)
  1. BACLOFEN. [Suspect]
     Active Substance: BACLOFEN
     Indication: ABDOMINAL PAIN
     Dosage: 80 MILLIGRAM DAILY;
     Route: 048
  2. VITAMIN?B12 [Concomitant]
     Indication: VITAMIN SUPPLEMENTATION
     Route: 065
  3. DIHYDROCODEINE [Concomitant]
     Active Substance: DIHYDROCODEINE
     Indication: PRODUCT USED FOR UNKNOWN INDICATION
     Dosage: 240 MILLIGRAM DAILY;
  4. BUSCOPAN [Suspect]
     Active Substance: BUTYLSCOPOLAMINE BROMIDE
     Indication: ABDOMINAL PAIN
     Dosage: 80 MILLIGRAM DAILY;
     Route: 048

REACTIONS (6)
  - Atonic seizures [Recovered/Resolved]
  - Encephalopathy [Recovered/Resolved]
  - Visual impairment [Recovered/Resolved]
  - Product dispensing error [Unknown]
  - Generalised tonic-clonic seizure [Recovered/Resolved]
  - Myoclonus [Recovered/Resolved]
